FAERS Safety Report 14727831 (Version 3)
Quarter: 2018Q2

REPORT INFORMATION
  Report Type: Spontaneous
  Country: US (occurrence: US)
  Receive Date: 20180406
  Receipt Date: 20180524
  Transmission Date: 20180711
  Serious: Yes (Death, Hospitalization)
  Sender: FDA-Public Use
  Company Number: US-JNJFOC-20180405080

PATIENT
  Age: 83 Year
  Sex: Male

DRUGS (1)
  1. ZYTIGA [Suspect]
     Active Substance: ABIRATERONE ACETATE
     Indication: PRODUCT USED FOR UNKNOWN INDICATION
     Route: 048
     Dates: start: 20180202, end: 20180317

REACTIONS (4)
  - Aspiration [Fatal]
  - Urinary tract infection [Unknown]
  - Pneumonia [Unknown]
  - Dysphagia [Fatal]

NARRATIVE: CASE EVENT DATE: 20180312
